FAERS Safety Report 7533831-X (Version None)
Quarter: 2011Q2

REPORT INFORMATION
  Report Type: 
  Country: None (occurrence: None)
  Receive Date: 20110608
  Receipt Date: 20060508
  Transmission Date: 20111010
  Serious: Yes (Death, Hospitalization)
  Sender: FDA-Public Use
  Company Number: PHHO2006BR05541

PATIENT
  Age: 73 Year
  Sex: Female
  Weight: 50 kg

DRUGS (8)
  1. DIOVAN [Suspect]
     Indication: HYPERTENSION
     Dosage: 80 MG, UNK
     Route: 048
     Dates: start: 20060220
  2. GLYBURIDE [Concomitant]
     Indication: DIABETES MELLITUS
  3. ATROVENT [Concomitant]
     Indication: ASTHMA
  4. CLENIL [Concomitant]
     Indication: ASTHMA
  5. SERTRALINE HYDROCHLORIDE [Concomitant]
  6. ALBUTEROL [Concomitant]
     Indication: ASTHMA
  7. METFORMIN HCL [Concomitant]
     Indication: DIABETES MELLITUS
  8. BEROTEC [Concomitant]
     Indication: ASTHMA

REACTIONS (2)
  - PNEUMONIA [None]
  - COUGH [None]
